FAERS Safety Report 5006544-6 (Version None)
Quarter: 2006Q2

REPORT INFORMATION
  Report Type: 
  Country: None (occurrence: None)
  Receive Date: 20060516
  Receipt Date: 20060502
  Transmission Date: 20061013
  Serious: Yes (Hospitalization)
  Sender: FDA-Public Use
  Company Number: 2006PV013090

PATIENT
  Age: 40 Year
  Sex: Female
  Weight: 108.8633 kg

DRUGS (14)
  1. BYETTA [Suspect]
     Indication: DIABETES MELLITUS NON-INSULIN-DEPENDENT
     Dosage: SEE IMAGE
     Route: 058
     Dates: start: 20060501, end: 20060501
  2. BYETTA [Suspect]
     Indication: DIABETES MELLITUS NON-INSULIN-DEPENDENT
     Dosage: SEE IMAGE
     Route: 058
     Dates: start: 20051001
  3. LASIX [Concomitant]
  4. AVAPRO [Concomitant]
  5. ACTOS [Concomitant]
  6. METFORMIN [Concomitant]
  7. GLIMEPIRIDE [Concomitant]
  8. LEXAPRO [Concomitant]
  9. XANAX [Concomitant]
  10. LIPITOR [Concomitant]
  11. TRICOR [Concomitant]
  12. PROTONIX [Concomitant]
  13. LANTUS [Concomitant]
  14. ADVAIR DISKUS 100/50 [Concomitant]

REACTIONS (6)
  - BIPOLAR DISORDER [None]
  - BLOOD GLUCOSE INCREASED [None]
  - NAUSEA [None]
  - OVERDOSE [None]
  - SUICIDE ATTEMPT [None]
  - VOMITING [None]
